FAERS Safety Report 10449575 (Version 1)
Quarter: 2014Q3

REPORT INFORMATION
  Report Type: Spontaneous
  Country: US (occurrence: None)
  Receive Date: 20140911
  Receipt Date: 20140911
  Transmission Date: 20150326
  Serious: Yes (Other)
  Sender: FDA-Public Use
  Company Number: None

PATIENT
  Age: 21 Year
  Sex: Female
  Weight: 122.47 kg

DRUGS (1)
  1. CELEXA [Suspect]
     Active Substance: CITALOPRAM HYDROBROMIDE
     Indication: ANXIETY DISORDER
     Route: 048

REACTIONS (1)
  - Amnesia [None]

NARRATIVE: CASE EVENT DATE: 20120906
